FAERS Safety Report 7820094-0 (Version None)
Quarter: 2011Q4

REPORT INFORMATION
  Report Type: 
  Country: None (occurrence: None)
  Receive Date: 20111018
  Receipt Date: 20111004
  Transmission Date: 20120403
  Serious: Yes (Other)
  Sender: FDA-Public Use
  Company Number: SE-PFIZER INC-2011245295

PATIENT
  Age: 40 Year
  Sex: Female

DRUGS (1)
  1. INDERAL [Suspect]
     Indication: STRESS
     Route: 048

REACTIONS (2)
  - INAPPROPRIATE SCHEDULE OF DRUG ADMINISTRATION [None]
  - ABORTION SPONTANEOUS [None]
